FAERS Safety Report 17565734 (Version 1)
Quarter: 2020Q1

REPORT INFORMATION
  Report Type: Spontaneous
  Country: US (occurrence: US)
  Receive Date: 20200228
  Receipt Date: 20200228
  Transmission Date: 20200409
  Serious: No
  Sender: FDA-Public Use
  Company Number: None

PATIENT
  Age: 65 Year
  Sex: Female

DRUGS (14)
  1. LORAZEPAM. [Concomitant]
     Active Substance: LORAZEPAM
  2. ESOMEPRA MAG [Concomitant]
  3. LEVOTHYROXIN [Concomitant]
     Active Substance: LEVOTHYROXINE
  4. PREDNISOLONE. [Concomitant]
     Active Substance: PREDNISOLONE
  5. SIMVASTATIN. [Concomitant]
     Active Substance: SIMVASTATIN
  6. OCALIVA [Suspect]
     Active Substance: OBETICHOLIC ACID
     Indication: PRIMARY BILIARY CHOLANGITIS
     Dosage: ?          OTHER DOSE:1 TAB;?
     Route: 048
     Dates: start: 20190919
  7. AMOXICILLIN. [Concomitant]
     Active Substance: AMOXICILLIN
  8. CIPROFLOXACIN. [Concomitant]
     Active Substance: CIPROFLOXACIN
  9. FLUOXETINE [Concomitant]
     Active Substance: FLUOXETINE HYDROCHLORIDE
  10. B/SOL TRIMETHP [Concomitant]
  11. URSODIOL. [Concomitant]
     Active Substance: URSODIOL
  12. ASA/DIPYRIDA [Concomitant]
  13. CYCLOBENZAPR [Concomitant]
     Active Substance: CYCLOBENZAPRINE
  14. MOXIFLOXACIN. [Concomitant]
     Active Substance: MOXIFLOXACIN

REACTIONS (1)
  - Pruritus [None]

NARRATIVE: CASE EVENT DATE: 20200228
